FAERS Safety Report 10597956 (Version 4)
Quarter: 2015Q1

REPORT INFORMATION
  Report Type: Spontaneous
  Country: US (occurrence: US)
  Receive Date: 20141121
  Receipt Date: 20150312
  Transmission Date: 20150720
  Serious: Yes (Hospitalization, Other)
  Sender: FDA-Public Use
  Company Number: US-PFIZER INC-2014319856

PATIENT
  Age: 54 Year
  Sex: Female

DRUGS (2)
  1. LYRICA [Suspect]
     Active Substance: PREGABALIN
     Indication: FIBROMYALGIA
     Dosage: 50 MG, UNK
     Dates: start: 201410, end: 201411
  2. ATARAX [Suspect]
     Active Substance: HYDROXYZINE\HYDROXYZINE HYDROCHLORIDE
     Indication: ANXIETY
     Dosage: UNK
     Dates: start: 201410

REACTIONS (10)
  - Tachyphrenia [Recovered/Resolved]
  - Insomnia [Unknown]
  - Fibromyalgia [Unknown]
  - Suicidal ideation [Recovered/Resolved]
  - Feeling abnormal [Recovered/Resolved]
  - Emotional distress [Unknown]
  - Pain [Recovered/Resolved]
  - Anxiety [Unknown]
  - Mental impairment [Recovered/Resolved]
  - Negative thoughts [Unknown]

NARRATIVE: CASE EVENT DATE: 201410
